FAERS Safety Report 6933087-2 (Version None)
Quarter: 2010Q3

REPORT INFORMATION
  Report Type: 
  Country: None (occurrence: None)
  Receive Date: 20100819
  Receipt Date: 20100812
  Transmission Date: 20110219
  Serious: Yes (Other)
  Sender: FDA-Public Use
  Company Number: US-ABBOTT-10P-163-0663989-00

PATIENT
  Sex: Female

DRUGS (2)
  1. NIASPAN [Suspect]
     Indication: PRODUCT USED FOR UNKNOWN INDICATION
     Route: 048
  2. INDOMETHACIN [Suspect]
     Indication: PAIN IN EXTREMITY
     Route: 048
     Dates: start: 20100701, end: 20100701

REACTIONS (9)
  - BLOOD GLUCOSE INCREASED [None]
  - BLOOD URINE PRESENT [None]
  - CELLULITIS [None]
  - DIZZINESS [None]
  - ERYTHEMA [None]
  - LOCAL SWELLING [None]
  - MYOCARDIAL INFARCTION [None]
  - NEPHROLITHIASIS [None]
  - PAIN IN EXTREMITY [None]
